FAERS Safety Report 6430538-7 (Version None)
Quarter: 2009Q4

REPORT INFORMATION
  Report Type: 
  Country: None (occurrence: None)
  Receive Date: 20091106
  Receipt Date: 20091102
  Transmission Date: 20100525
  Serious: Yes (Other)
  Sender: FDA-Public Use
  Company Number: A0814404A

PATIENT
  Age: 81 Year
  Sex: Male

DRUGS (10)
  1. LANOXIN [Suspect]
     Dosage: .125MG PER DAY
     Route: 048
     Dates: start: 20040101
  2. FLOVENT [Suspect]
     Indication: EMPHYSEMA
     Dosage: 2PUFF TWICE PER DAY
     Route: 055
     Dates: start: 20090801
  3. ALBUTEROL [Suspect]
     Indication: EMPHYSEMA
     Route: 055
  4. XOPENEX [Concomitant]
  5. NEBULIZER [Concomitant]
  6. ONE A DAY [Concomitant]
  7. DIAVAN [Concomitant]
  8. FLECAINIDE ACETATE [Concomitant]
  9. WARFARIN SODIUM [Concomitant]
  10. ZOCOR [Concomitant]

REACTIONS (4)
  - ATRIAL FIBRILLATION [None]
  - DRUG INEFFECTIVE [None]
  - HEART RATE INCREASED [None]
  - HEART RATE IRREGULAR [None]
